FAERS Safety Report 5386990-1 (Version None)
Quarter: 2007Q3

REPORT INFORMATION
  Report Type: 
  Country: None (occurrence: None)
  Receive Date: 20070713
  Receipt Date: 20070711
  Transmission Date: 20080115
  Serious: Yes (Other)
  Sender: FDA-Public Use
  Company Number: GB-MERCK-0611GBR00068

PATIENT
  Age: 63 Year
  Sex: Female

DRUGS (3)
  1. ZETIA [Suspect]
     Route: 048
     Dates: start: 20061001
  2. ATORVASTATIN [Concomitant]
     Route: 048
  3. [THERAPY UNSPECIFIED] [Concomitant]
     Route: 065

REACTIONS (1)
  - VASCULITIS [None]
